FAERS Safety Report 9373691 (Version 1)
Quarter: 2013Q2

REPORT INFORMATION
  Report Type: Spontaneous
  Country: CN (occurrence: CN)
  Receive Date: 20130627
  Receipt Date: 20130627
  Transmission Date: 20140414
  Serious: Yes (Other)
  Sender: FDA-Public Use
  Company Number: CN-BAXTER-2013BAX024722

PATIENT
  Age: 33 Year
  Sex: Female
  Weight: 53 kg

DRUGS (5)
  1. MEDIUM AND LONG CHAIN FAT EMULSION INJECTION [Suspect]
     Indication: ABORTION THREATENED
     Route: 041
     Dates: start: 20120220, end: 20120221
  2. MEDIUM AND LONG CHAIN FAT EMULSION INJECTION [Suspect]
     Indication: OFF LABEL USE
  3. SODIUM LACTATE RINGER^S INJECTION [Suspect]
     Indication: ABORTION THREATENED
     Route: 065
     Dates: start: 20120220
  4. SODIUM LACTATE RINGER^S INJECTION [Suspect]
     Indication: OFF LABEL USE
  5. SODIUM LACTATE RINGER^S INJECTION [Suspect]
     Indication: NUTRITIONAL SUPPLEMENTATION

REACTIONS (2)
  - Rash erythematous [Recovering/Resolving]
  - Exposure during pregnancy [Unknown]
